FAERS Safety Report 23196169 (Version 1)
Quarter: 2023Q4

REPORT INFORMATION
  Report Type: Spontaneous
  Country: US (occurrence: US)
  Receive Date: 20231117
  Receipt Date: 20231117
  Transmission Date: 20240110
  Serious: No
  Sender: FDA-Public Use
  Company Number: US-SA-2023SA352748

PATIENT
  Age: 8 Year
  Sex: Female

DRUGS (11)
  1. CEREZYME [Suspect]
     Active Substance: IMIGLUCERASE
     Indication: Gaucher^s disease
     Dosage: 1200 U, QOW
     Route: 042
     Dates: start: 20230427
  2. DEXMETHYLPHENIDATE HYDROCHLORIDE [Concomitant]
     Active Substance: DEXMETHYLPHENIDATE HYDROCHLORIDE
     Indication: Attention deficit hyperactivity disorder
     Dosage: 5 MG, QD
  3. EPINEPHRINE [Concomitant]
     Active Substance: EPINEPHRINE
  4. ACETAMINOPHEN [Concomitant]
     Active Substance: ACETAMINOPHEN
     Dosage: UNK
  5. SODIUM CHLORIDE [Concomitant]
     Active Substance: SODIUM CHLORIDE
  6. STERILE WATER [Concomitant]
     Active Substance: WATER
  7. SODIUM CHLORIDE [Concomitant]
     Active Substance: SODIUM CHLORIDE
  8. LIDOCAINE [Concomitant]
     Active Substance: LIDOCAINE
  9. HEPARIN [Concomitant]
     Active Substance: HEPARIN SODIUM
     Dosage: UNK
  10. DIPHENHYDRAMINE HYDROCHLORIDE [Concomitant]
     Active Substance: DIPHENHYDRAMINE HYDROCHLORIDE
     Dosage: UNK
  11. CHILDREN^S MULTIVITAMIN [Concomitant]

REACTIONS (2)
  - Nasopharyngitis [Unknown]
  - Cough [Unknown]

NARRATIVE: CASE EVENT DATE: 20230101
